FAERS Safety Report 20052253 (Version 1)
Quarter: 2021Q4

REPORT INFORMATION
  Report Type: Spontaneous
  Country: JP (occurrence: JP)
  Receive Date: 20211110
  Receipt Date: 20211110
  Transmission Date: 20220303
  Serious: Yes (Other)
  Sender: FDA-Public Use
  Company Number: JP-GEHPL-2021JSU005464AA

PATIENT

DRUGS (3)
  1. OMNIPAQUE [Suspect]
     Active Substance: IOHEXOL
     Indication: Computerised tomogram aorta
     Dosage: UNK, SINGLE
     Route: 065
  2. OMNIPAQUE [Suspect]
     Active Substance: IOHEXOL
     Indication: Aortic aneurysm
  3. OMNIPAQUE [Suspect]
     Active Substance: IOHEXOL
     Indication: Aortic aneurysm

REACTIONS (3)
  - Electrocardiogram ST segment elevation [Recovering/Resolving]
  - Kounis syndrome [Recovering/Resolving]
  - Anaphylactic shock [Recovering/Resolving]
